FAERS Safety Report 12157843 (Version 1)
Quarter: 2016Q1

REPORT INFORMATION
  Report Type: Spontaneous
  Country: US (occurrence: None)
  Receive Date: 20160307
  Receipt Date: 20160307
  Transmission Date: 20160526
  Serious: Yes (Disabling)
  Sender: FDA-Public Use
  Company Number: None

PATIENT
  Age: 70 Year
  Sex: Male
  Weight: 90.72 kg

DRUGS (2)
  1. LEVOFLOXACIN. [Suspect]
     Active Substance: LEVOFLOXACIN
     Indication: PNEUMONIA
     Dosage: 1 TABLET ONCE DAILY TAKEN BY MOUTH
     Route: 048
  2. GEMFIBROZIL HCTZ [Concomitant]

REACTIONS (2)
  - Deafness [None]
  - Speech disorder [None]

NARRATIVE: CASE EVENT DATE: 20150829
